FAERS Safety Report 4940331-X (Version None)
Quarter: 2006Q1

REPORT INFORMATION
  Report Type: 
  Country: None (occurrence: None)
  Receive Date: 20060310
  Receipt Date: 20050718
  Transmission Date: 20060701
  Serious: Yes (Hospitalization, Disabling)
  Sender: FDA-Public Use
  Company Number: US-MERCK-0507USA02805

PATIENT
  Age: 43 Year
  Sex: Female
  Weight: 82 kg

DRUGS (4)
  1. VIOXX [Suspect]
     Indication: MUSCLE SPASMS
     Route: 048
     Dates: start: 20030701, end: 20040901
  2. VIOXX [Suspect]
     Route: 048
     Dates: start: 20030701, end: 20040901
  3. VIOXX [Suspect]
     Indication: ARTHRITIS
     Route: 048
     Dates: start: 20030701, end: 20040901
  4. VIOXX [Suspect]
     Route: 048
     Dates: start: 20030701, end: 20040901

REACTIONS (8)
  - ANXIETY [None]
  - CHEST PAIN [None]
  - DEPRESSION [None]
  - EPISTAXIS [None]
  - GYNAECOLOGICAL EXAMINATION ABNORMAL [None]
  - MYOCARDIAL INFARCTION [None]
  - NERVE COMPRESSION [None]
  - OEDEMA [None]
